FAERS Safety Report 8919812 (Version 2)
Quarter: 2013Q1

REPORT INFORMATION
  Report Type: Spontaneous
  Country: US (occurrence: US)
  Receive Date: 20121121
  Receipt Date: 20130313
  Transmission Date: 20140127
  Serious: Yes (Other)
  Sender: FDA-Public Use
  Company Number: US-BAYER-2012-120042

PATIENT
  Age: 25 Year
  Sex: Female
  Weight: 129.25 kg

DRUGS (6)
  1. YAZ [Suspect]
     Indication: CONTRACEPTION
     Dosage: UNK
     Dates: start: 2006, end: 2009
  2. TRI-SPRINTEC [Concomitant]
     Indication: CONTRACEPTION
     Dosage: UNK
     Dates: start: 2009
  3. ADVIL [IBUPROFEN] [Concomitant]
     Indication: ANALGESIC THERAPY
     Dosage: 2 PILLS AS NECESSARY
  4. PROTONIX [Concomitant]
     Indication: GASTROOESOPHAGEAL REFLUX DISEASE
     Dosage: 1 PILL/DAY
  5. HYOMAX-FT [Concomitant]
     Dosage: UNK
     Dates: start: 20091022
  6. METOLOPRAMIDE HCL [Concomitant]
     Dosage: UNK
     Dates: start: 20091022

REACTIONS (8)
  - Gallbladder disorder [None]
  - Gallbladder cholesterolosis [None]
  - Emotional distress [None]
  - Injury [None]
  - Pain [None]
  - Pain [None]
  - General physical health deterioration [None]
  - Anxiety [None]
